FAERS Safety Report 11363039 (Version 3)
Quarter: 2015Q4

REPORT INFORMATION
  Report Type: Spontaneous
  Country: US (occurrence: US)
  Receive Date: 20150810
  Receipt Date: 20151111
  Transmission Date: 20160304
  Serious: Yes (Death, Life-Threatening, Hospitalization, Disabling, Other)
  Sender: FDA-Public Use
  Company Number: US-MERCK-1508USA003881

PATIENT
  Sex: Male
  Weight: 113.38 kg

DRUGS (9)
  1. SPIRONOLACTONE. [Concomitant]
     Active Substance: SPIRONOLACTONE
     Indication: ESSENTIAL HYPERTENSION
     Dosage: UNK
     Dates: start: 200201, end: 201306
  2. LISINOPRIL. [Concomitant]
     Active Substance: LISINOPRIL
     Indication: ESSENTIAL HYPERTENSION
     Dosage: UNK
     Dates: start: 200201, end: 201306
  3. VICTOZA [Suspect]
     Active Substance: LIRAGLUTIDE
     Indication: TYPE 2 DIABETES MELLITUS
     Dosage: 1.2-1.8 MG/3 ML DAILY
     Dates: start: 20110923, end: 20121113
  4. TRADJENTA [Suspect]
     Active Substance: LINAGLIPTIN
     Indication: TYPE 2 DIABETES MELLITUS
     Dosage: 5 MG, DAILY
     Dates: start: 20110628, end: 20110726
  5. ONGLYZA [Suspect]
     Active Substance: SAXAGLIPTIN HYDROCHLORIDE
     Indication: TYPE 2 DIABETES MELLITUS
     Dosage: DAILY
     Dates: start: 20110611, end: 20110911
  6. FUROSEMIDE. [Concomitant]
     Active Substance: FUROSEMIDE
     Indication: CARDIAC FAILURE CONGESTIVE
     Dosage: UNK
     Dates: start: 200201, end: 201306
  7. CARVEDILOL. [Concomitant]
     Active Substance: CARVEDILOL
     Indication: CARDIAC FAILURE CONGESTIVE
     Dosage: UNK
     Dates: start: 200201, end: 201306
  8. LIPITOR [Concomitant]
     Active Substance: ATORVASTATIN CALCIUM
     Indication: HYPERCHOLESTEROLAEMIA
     Dosage: UNK
     Dates: start: 200201, end: 201306
  9. JANUVIA [Suspect]
     Active Substance: SITAGLIPTIN PHOSPHATE
     Indication: TYPE 2 DIABETES MELLITUS
     Dosage: 100 MG, DAILY
     Route: 048
     Dates: start: 20101004, end: 20101101

REACTIONS (30)
  - Metastases to bone [Unknown]
  - Prostate cancer metastatic [Unknown]
  - Cholelithiasis [Unknown]
  - Aortic dilatation [Unknown]
  - Hypotension [Unknown]
  - Hypomagnesaemia [Unknown]
  - Dyspnoea [Unknown]
  - Spinal osteoarthritis [Unknown]
  - Hypokalaemia [Unknown]
  - Burning sensation [Unknown]
  - Nasopharyngitis [Unknown]
  - Influenza [Unknown]
  - Atelectasis [Unknown]
  - Hepatic cyst [Unknown]
  - Diabetic neuropathy [Unknown]
  - Vascular occlusion [Unknown]
  - Metastasis [Unknown]
  - Chronic obstructive pulmonary disease [Not Recovered/Not Resolved]
  - Pulmonary granuloma [Unknown]
  - Drug ineffective [Unknown]
  - Lower gastrointestinal haemorrhage [Unknown]
  - Arteriosclerosis coronary artery [Unknown]
  - Rhinorrhoea [Unknown]
  - Diabetes mellitus inadequate control [Unknown]
  - Atrial fibrillation [Unknown]
  - Cardioversion [Unknown]
  - Drug intolerance [Unknown]
  - Abdominal pain [Unknown]
  - Pancreatic carcinoma metastatic [Fatal]
  - Metastases to lymph nodes [Unknown]

NARRATIVE: CASE EVENT DATE: 20101101
